FAERS Safety Report 9158532 (Version 2)
Quarter: 2013Q2

REPORT INFORMATION
  Report Type: Spontaneous
  Country: US (occurrence: US)
  Receive Date: 20130312
  Receipt Date: 20130423
  Transmission Date: 20140414
  Serious: No
  Sender: FDA-Public Use
  Company Number: US-B.I. PHARMACEUTICALS,INC./RIDGEFIELD-2013-BI-06323BP

PATIENT
  Age: 73 Year
  Sex: Male

DRUGS (2)
  1. PRADAXA [Suspect]
     Indication: ATRIAL FIBRILLATION
     Dosage: 300 MG
     Route: 048
     Dates: start: 20121205, end: 20121207
  2. PRADAXA [Suspect]
     Indication: ATRIAL FLUTTER

REACTIONS (7)
  - Unevaluable event [Unknown]
  - Oropharyngeal pain [Recovered/Resolved]
  - Dyspepsia [Recovered/Resolved]
  - Abdominal discomfort [Recovered/Resolved]
  - Oesophageal irritation [Recovered/Resolved]
  - Oesophageal pain [Recovered/Resolved]
  - Dysphagia [Recovered/Resolved]
